FAERS Safety Report 5158966-0 (Version None)
Quarter: 2006Q4

REPORT INFORMATION
  Report Type: 
  Country: None (occurrence: None)
  Receive Date: 20061117
  Receipt Date: 20061106
  Transmission Date: 20070319
  Serious: Yes (Hospitalization)
  Sender: FDA-Public Use
  Company Number: 2006136687

PATIENT
  Age: 86 Year
  Sex: Male
  Weight: 47.1 kg

DRUGS (4)
  1. AMLODIPINE [Suspect]
     Indication: HYPERTENSION
     Dosage: SEE IMAGE
     Route: 048
     Dates: start: 20060406, end: 20060622
  2. AMLODIPINE [Suspect]
     Indication: HYPERTENSION
     Dosage: SEE IMAGE
     Route: 048
     Dates: start: 20060623, end: 20060704
  3. ACECOL (TEMOCAPRIL HYDROCHLORIDE) [Concomitant]
  4. SENNOSIDES (SENNOSIDES A+B) [Concomitant]

REACTIONS (6)
  - ANAEMIA [None]
  - BLOOD PRESSURE INADEQUATELY CONTROLLED [None]
  - CONDITION AGGRAVATED [None]
  - DRUG HYPERSENSITIVITY [None]
  - EPISTAXIS [None]
  - RENAL IMPAIRMENT [None]
